FAERS Safety Report 12244732 (Version 1)
Quarter: 2016Q2

REPORT INFORMATION
  Report Type: Spontaneous
  Country: None (occurrence: None)
  Receive Date: 20160406
  Receipt Date: 20160406
  Transmission Date: 20160815
  Serious: Yes (Other)
  Sender: FDA-Public Use
  Company Number: None

PATIENT
  Age: 30 Year
  Sex: Female

DRUGS (2)
  1. SOVALDI [Concomitant]
     Active Substance: SOFOSBUVIR
  2. RIBASPHERE [Suspect]
     Active Substance: RIBAVIRIN
     Dosage: 600- AMD 400 MG
     Route: 048

REACTIONS (8)
  - Weight decreased [None]
  - Contusion [None]
  - Insomnia [None]
  - Anxiety [None]
  - Decreased appetite [None]
  - Nausea [None]
  - Pain [None]
  - Fatigue [None]

NARRATIVE: CASE EVENT DATE: 20160301
